FAERS Safety Report 12705247 (Version 1)
Quarter: 2016Q3

REPORT INFORMATION
  Report Type: Spontaneous
  Country: US (occurrence: None)
  Receive Date: 20160831
  Receipt Date: 20160831
  Transmission Date: 20161109
  Serious: Yes (Other)
  Sender: FDA-Public Use
  Company Number: None

PATIENT
  Age: 57 Year
  Sex: Female
  Weight: 63.5 kg

DRUGS (8)
  1. PREDNISONE. [Suspect]
     Active Substance: PREDNISONE
     Indication: MUSCULOSKELETAL PAIN
     Dosage: 6, 5, 4, 3, 2, 1 TAKEN BY MOUTH
     Route: 048
     Dates: start: 20160810, end: 20160815
  2. VITAMIN D [Concomitant]
     Active Substance: CHOLECALCIFEROL
  3. CALCIUM [Concomitant]
     Active Substance: CALCIUM
  4. METHYLPHENIDATE. [Concomitant]
     Active Substance: METHYLPHENIDATE
  5. IBUPROFEN. [Concomitant]
     Active Substance: IBUPROFEN
  6. THYRONINE [Concomitant]
  7. THYROXINE [Concomitant]
     Active Substance: LEVOTHYROXINE
  8. VITAMIN C [Concomitant]
     Active Substance: ASCORBIC ACID

REACTIONS (3)
  - Suicidal ideation [None]
  - Cardiac disorder [None]
  - Depression [None]

NARRATIVE: CASE EVENT DATE: 20160821
